FAERS Safety Report 4274301-4 (Version None)
Quarter: 2004Q1

REPORT INFORMATION
  Report Type: 
  Country: None (occurrence: None)
  Receive Date: 20040115
  Receipt Date: 20040105
  Transmission Date: 20041129
  Serious: Yes (Other)
  Sender: FDA-Public Use
  Company Number: 2004001002

PATIENT
  Sex: Female
  Weight: 66.6788 kg

DRUGS (1)
  1. DILANTIN [Suspect]
     Indication: CONVULSION
     Dosage: 300 MG (DAILY), ORAL
     Route: 048
     Dates: start: 19890101, end: 20030101

REACTIONS (6)
  - CONDITION AGGRAVATED [None]
  - CONVULSION [None]
  - HYPOAESTHESIA [None]
  - NEUROPATHY PERIPHERAL [None]
  - PARAESTHESIA [None]
  - SENSORY DISTURBANCE [None]
